FAERS Safety Report 14566798 (Version 2)
Quarter: 2018Q2

REPORT INFORMATION
  Report Type: Spontaneous
  Country: JP (occurrence: JP)
  Receive Date: 20180223
  Receipt Date: 20180419
  Transmission Date: 20180711
  Serious: Yes (Death)
  Sender: FDA-Public Use
  Company Number: PHJP2017JP023154

PATIENT
  Age: 6 Day
  Sex: Male

DRUGS (1)
  1. AFINITOR [Suspect]
     Active Substance: EVEROLIMUS
     Indication: RHABDOMYOMA
     Dosage: 3.0 MG/M2, QD
     Route: 048

REACTIONS (7)
  - Ventricular tachycardia [Fatal]
  - Ventricular extrasystoles [Fatal]
  - Ventricular arrhythmia [Fatal]
  - Cardiac arrest [Fatal]
  - Product use in unapproved indication [Unknown]
  - Blood pressure decreased [Fatal]
  - Drug administered to patient of inappropriate age [Unknown]
